FAERS Safety Report 5601539-3 (Version None)
Quarter: 2008Q1

REPORT INFORMATION
  Report Type: 
  Country: None (occurrence: None)
  Receive Date: 20080124
  Receipt Date: 20080114
  Transmission Date: 20080703
  Serious: Yes (Hospitalization)
  Sender: FDA-Public Use
  Company Number: PE-ABBOTT-07P-127-0420509-00

PATIENT
  Sex: Female
  Weight: 54 kg

DRUGS (1)
  1. HUMIRA [Suspect]
     Indication: RHEUMATOID ARTHRITIS
     Route: 058
     Dates: start: 20070530, end: 20070906

REACTIONS (3)
  - LUNG CONSOLIDATION [None]
  - PYREXIA [None]
  - TUBERCULOUS PLEURISY [None]
